FAERS Safety Report 11359620 (Version 2)
Quarter: 2015Q3

REPORT INFORMATION
  Report Type: Spontaneous
  Country: US (occurrence: US)
  Receive Date: 20150807
  Receipt Date: 20150819
  Transmission Date: 20151125
  Serious: Yes (Hospitalization)
  Sender: FDA-Public Use
  Company Number: GXBR2015US001782

PATIENT
  Age: 72 Year
  Sex: Male
  Weight: 80.27 kg

DRUGS (14)
  1. FLUOXETINE [Suspect]
     Active Substance: FLUOXETINE\FLUOXETINE HYDROCHLORIDE
     Indication: PANIC DISORDER
     Dosage: 20 MG, QD
     Route: 048
  2. FLUOXETINE [Suspect]
     Active Substance: FLUOXETINE\FLUOXETINE HYDROCHLORIDE
     Dosage: 40 MG, QD
     Route: 048
  3. WARFARIN [Suspect]
     Active Substance: WARFARIN
     Indication: PULMONARY THROMBOSIS
     Dosage: 10 MG, QD
     Route: 048
  4. METOPROLOL TARTRATE. [Concomitant]
     Active Substance: METOPROLOL TARTRATE
     Indication: BLOOD PRESSURE MEASUREMENT
     Dosage: 20 MG, QD
     Route: 065
  5. CRESTOR [Concomitant]
     Active Substance: ROSUVASTATIN CALCIUM
     Indication: BLOOD CHOLESTEROL INCREASED
     Dosage: UNK DF, UNK
     Route: 065
  6. BABY ASPIRIN [Concomitant]
     Active Substance: ASPIRIN
     Indication: CARDIOVASCULAR EVENT PROPHYLAXIS
     Dosage: UNK DF, QD (IN THE MORNING)
     Route: 065
  7. LISINOPRIL HCTZ [Concomitant]
     Active Substance: HYDROCHLOROTHIAZIDE\LISINOPRIL
     Indication: HYPERTENSION
     Dosage: LISINOPRIL/HCTZ 20MG/12.5MG, UNK
     Route: 065
  8. METOPROLOL TARTRATE. [Concomitant]
     Active Substance: METOPROLOL TARTRATE
     Dosage: 25 MG, BID
     Route: 065
     Dates: start: 2003
  9. FLUOXETINE [Suspect]
     Active Substance: FLUOXETINE\FLUOXETINE HYDROCHLORIDE
     Dosage: 80 MG, QD
     Route: 048
     Dates: end: 201506
  10. MYSOLINE [Concomitant]
     Active Substance: PRIMIDONE
     Indication: TREMOR
     Dosage: 250 MG, TID
     Route: 065
  11. FINASTERIDE. [Concomitant]
     Active Substance: FINASTERIDE
     Indication: PROSTATOMEGALY
     Dosage: 0.5 MG, QHS
     Route: 065
  12. FLUOXETINE [Suspect]
     Active Substance: FLUOXETINE\FLUOXETINE HYDROCHLORIDE
     Indication: ANXIETY
     Dosage: 40MG QAM, 20MG QHS
     Route: 048
     Dates: start: 201506
  13. WARFARIN [Suspect]
     Active Substance: WARFARIN
     Dosage: 5MG ONE DAY AND 10MG ALL OTHER DAYS, QD
     Route: 048
  14. OMEPRAZOLE. [Concomitant]
     Active Substance: OMEPRAZOLE
     Indication: DYSPEPSIA
     Dosage: 40 MG, QD
     Route: 065

REACTIONS (5)
  - Flank pain [Recovered/Resolved]
  - Constipation [Recovered/Resolved]
  - Blood pressure decreased [Not Recovered/Not Resolved]
  - Dry mouth [Not Recovered/Not Resolved]
  - Pulmonary thrombosis [Recovered/Resolved]

NARRATIVE: CASE EVENT DATE: 201507
